FAERS Safety Report 9424728 (Version 1)
Quarter: 2013Q3

REPORT INFORMATION
  Report Type: Spontaneous
  Country: GB (occurrence: GB)
  Receive Date: 20130729
  Receipt Date: 20130729
  Transmission Date: 20140515
  Serious: Yes (Congenital Anomaly, Other)
  Sender: FDA-Public Use
  Company Number: GB-ELI_LILLY_AND_COMPANY-GB201307007208

PATIENT
  Sex: 0

DRUGS (6)
  1. OLANZAPINE [Suspect]
     Indication: SCHIZOPHRENIA
     Dosage: 15 MG, QD
     Route: 064
  2. DIAZEPAM [Suspect]
     Dosage: 10 MG, TID
     Route: 064
  3. OMEPRAZOLE [Suspect]
     Dosage: 30 MG, UNK
     Route: 064
  4. PREGABALIN [Suspect]
     Indication: PAIN IN EXTREMITY
     Dosage: 300 MG, BID
     Route: 064
  5. SUBUTEX [Suspect]
     Dosage: 14 MG, QD
     Route: 064
  6. ZOPICLONE [Suspect]
     Dosage: 15 MG, QD
     Route: 064

REACTIONS (6)
  - Single functional kidney [Not Recovered/Not Resolved]
  - Limb reduction defect [Not Recovered/Not Resolved]
  - Oesophageal atresia [Not Recovered/Not Resolved]
  - Congenital scoliosis [Not Recovered/Not Resolved]
  - Foetal cardiac disorder [Not Recovered/Not Resolved]
  - Foetal exposure during pregnancy [Unknown]
